FAERS Safety Report 18969600 (Version 1)
Quarter: 2021Q1

REPORT INFORMATION
  Report Type: Report from Study
  Country: US (occurrence: US)
  Receive Date: 20210304
  Receipt Date: 20210304
  Transmission Date: 20210420
  Serious: No
  Sender: FDA-Public Use
  Company Number: NVSC2021US044517

PATIENT
  Sex: Female

DRUGS (1)
  1. KISQALI [Suspect]
     Active Substance: RIBOCICLIB
     Indication: PRODUCT USED FOR UNKNOWN INDICATION
     Route: 048

REACTIONS (7)
  - Abdominal discomfort [Unknown]
  - Vomiting [Unknown]
  - Productive cough [Unknown]
  - Cough [Unknown]
  - Constipation [Unknown]
  - Dysuria [Unknown]
  - Diarrhoea [Unknown]
